FAERS Safety Report 13692853 (Version 1)
Quarter: 2017Q2

REPORT INFORMATION
  Report Type: Spontaneous
  Country: US (occurrence: US)
  Receive Date: 20170626
  Receipt Date: 20170626
  Transmission Date: 20170830
  Serious: Yes (Hospitalization)
  Sender: FDA-Public Use
  Company Number: None

PATIENT
  Age: 65 Year
  Sex: Male
  Weight: 75.02 kg

DRUGS (1)
  1. IBRUTINIB [Suspect]
     Active Substance: IBRUTINIB
     Indication: CHRONIC LYMPHOCYTIC LEUKAEMIA
     Dates: start: 20170303

REACTIONS (9)
  - Upper-airway cough syndrome [None]
  - Pruritus [None]
  - Rash morbilliform [None]
  - Sinusitis [None]
  - Rash [None]
  - Urticaria [None]
  - Diarrhoea [None]
  - Oropharyngeal pain [None]
  - Vomiting [None]

NARRATIVE: CASE EVENT DATE: 20170316
